FAERS Safety Report 21771452 (Version 1)
Quarter: 2022Q4

REPORT INFORMATION
  Report Type: Report from Study
  Country: US (occurrence: US)
  Receive Date: 20221223
  Receipt Date: 20221223
  Transmission Date: 20230112
  Serious: No
  Sender: FDA-Public Use
  Company Number: US-BIOVITRUM-2022US15265

PATIENT
  Sex: Male

DRUGS (7)
  1. SYNAGIS [Suspect]
     Active Substance: PALIVIZUMAB
     Indication: Antiviral prophylaxis
  2. KEPPRA [Concomitant]
     Active Substance: LEVETIRACETAM
  3. LASIX [Concomitant]
     Active Substance: FUROSEMIDE
  4. VITAMIN D INFANT [Concomitant]
  5. BENZOCAINE [Concomitant]
     Active Substance: BENZOCAINE
  6. FUROSEMIDE [Concomitant]
     Active Substance: FUROSEMIDE
  7. LEVETIRACETAM [Concomitant]
     Active Substance: LEVETIRACETAM

REACTIONS (2)
  - Vomiting [Unknown]
  - Rash [Recovered/Resolved]
